FAERS Safety Report 8444174-4 (Version None)
Quarter: 2012Q2

REPORT INFORMATION
  Report Type: 
  Country: None (occurrence: None)
  Receive Date: 20120611
  Receipt Date: 20120515
  Transmission Date: 20120825
  Serious: Yes (Other)
  Sender: FDA-Public Use
  Company Number: 001240052A

PATIENT
  Age: 64 Year
  Sex: Female

DRUGS (8)
  1. PROBENECID [Concomitant]
  2. LYRICA [Concomitant]
  3. LISINOPRIL [Concomitant]
  4. C 10 [Concomitant]
  5. ALLERGY MEDICATION [Concomitant]
  6. PLAVIX [Concomitant]
  7. ADULT STRENGTH ASPIRIN DAILY [Concomitant]
  8. SHEER COVER MINERAL FOUNDATION SPF-15 [Suspect]
     Dosage: ONCE DERMAL
     Route: 061
     Dates: start: 20120514

REACTIONS (3)
  - SNEEZING [None]
  - APPLICATION SITE SWELLING [None]
  - DYSPNOEA [None]
